FAERS Safety Report 18758428 (Version 1)
Quarter: 2021Q1

REPORT INFORMATION
  Report Type: Spontaneous
  Country: EE (occurrence: EE)
  Receive Date: 20210120
  Receipt Date: 20210120
  Transmission Date: 20210419
  Serious: Yes (Other)
  Sender: FDA-Public Use
  Company Number: EE-ABBVIE-20K-221-3691958-00

PATIENT
  Sex: Female
  Weight: 112 kg

DRUGS (1)
  1. HUMIRA [Suspect]
     Active Substance: ADALIMUMAB
     Indication: HIDRADENITIS
     Route: 058
     Dates: start: 20200930

REACTIONS (3)
  - Cervical dysplasia [Unknown]
  - Papilloma viral infection [Unknown]
  - Cervical dysplasia [Unknown]

NARRATIVE: CASE EVENT DATE: 2020
